FAERS Safety Report 7688164-8 (Version None)
Quarter: 2011Q3

REPORT INFORMATION
  Report Type: 
  Country: None (occurrence: None)
  Receive Date: 20110817
  Receipt Date: 20110623
  Transmission Date: 20111222
  Serious: No
  Sender: FDA-Public Use
  Company Number: US-GLAXOSMITHKLINE-A0877115A

PATIENT
  Age: 83 Year
  Sex: Male

DRUGS (2)
  1. MULTIPLE MEDICATION [Concomitant]
  2. VOTRIENT [Suspect]
     Indication: NEOPLASM MALIGNANT
     Dosage: 800MG PER DAY
     Route: 048
     Dates: start: 20100501, end: 20110601

REACTIONS (8)
  - DIARRHOEA [None]
  - FEELING ABNORMAL [None]
  - FATIGUE [None]
  - THYROID DISORDER [None]
  - DECREASED APPETITE [None]
  - LUNG DISORDER [None]
  - TREMOR [None]
  - CONTUSION [None]
